FAERS Safety Report 25543486 (Version 1)
Quarter: 2025Q3

REPORT INFORMATION
  Report Type: Spontaneous
  Country: US (occurrence: None)
  Receive Date: 20250710
  Receipt Date: 20250710
  Transmission Date: 20251020
  Serious: Yes (Other)
  Sender: FDA-CTU
  Company Number: None

PATIENT
  Age: 32 Year
  Sex: Female
  Weight: 67.5 kg

DRUGS (5)
  1. OCREVUS [Suspect]
     Active Substance: OCRELIZUMAB
  2. XANAX [Concomitant]
     Active Substance: ALPRAZOLAM
  3. felexril [Concomitant]
  4. IRON [Concomitant]
     Active Substance: IRON
  5. VITAMINS [Concomitant]
     Active Substance: VITAMINS

REACTIONS (4)
  - Photosensitivity reaction [None]
  - Chloasma [None]
  - Sunburn [None]
  - Adverse drug reaction [None]

NARRATIVE: CASE EVENT DATE: 20220701
